FAERS Safety Report 24752277 (Version 2)
Quarter: 2025Q3

REPORT INFORMATION
  Report Type: Spontaneous
  Country: JP (occurrence: JP)
  Receive Date: 20241219
  Receipt Date: 20250803
  Transmission Date: 20251021
  Serious: Yes (Other)
  Sender: ALEXION PHARMACEUTICALS
  Company Number: JP-ASTRAZENECA-240141646_032620_P_1

PATIENT
  Sex: Female

DRUGS (3)
  1. FASENRA [Suspect]
     Active Substance: BENRALIZUMAB
  2. NUCALA [Concomitant]
     Active Substance: MEPOLIZUMAB
     Route: 065
  3. DUPIXENT [Concomitant]
     Active Substance: DUPILUMAB
     Route: 065

REACTIONS (8)
  - Empyema [Recovering/Resolving]
  - Eosinophilic otitis media [Unknown]
  - Drug ineffective [Unknown]
  - Nasal polyps [Recovering/Resolving]
  - Rhinitis allergic [Recovering/Resolving]
  - Asthma [Recovering/Resolving]
  - Vasculitis [Unknown]
  - Neuritis [Unknown]
